FAERS Safety Report 4353482-8 (Version None)
Quarter: 2004Q2

REPORT INFORMATION
  Report Type: 
  Country: None (occurrence: None)
  Receive Date: 20040505
  Receipt Date: 20040505
  Transmission Date: 20050107
  Serious: Yes (Life-Threatening, Hospitalization)
  Sender: FDA-Public Use
  Company Number: None

PATIENT
  Age: 74 Year
  Sex: Male
  Weight: 84.4 kg

DRUGS (14)
  1. FENTANYL [Suspect]
     Indication: PAIN
     Dosage: 100 MCG Q TOP
     Route: 061
     Dates: end: 20040111
  2. OXYCODONE [Suspect]
     Dosage: PO
     Route: 048
  3. GLIPIZIDE [Concomitant]
  4. ACETAMINOPHEN [Concomitant]
  5. FENTANYL [Concomitant]
  6. LACTULOSE [Concomitant]
  7. ALBUTEROL/IPRATROPIUM [Concomitant]
  8. BACLOFEN [Concomitant]
  9. SERTRALINE HCL [Concomitant]
  10. RABEPRAZOLE SODIUM [Concomitant]
  11. GABAPENTIN [Concomitant]
  12. PROMETHAZINE [Concomitant]
  13. MULTI-VITAMIN [Concomitant]
  14. AMIKACIN SULFATE [Concomitant]

REACTIONS (1)
  - RESPIRATORY FAILURE [None]
